FAERS Safety Report 8221398-2 (Version None)
Quarter: 2012Q1

REPORT INFORMATION
  Report Type: 
  Country: None (occurrence: None)
  Receive Date: 20120320
  Receipt Date: 20120316
  Transmission Date: 20120608
  Serious: Yes (Hospitalization)
  Sender: FDA-Public Use
  Company Number: PHHY2012FR001240

PATIENT
  Sex: Male

DRUGS (6)
  1. VALPROIC ACID [Suspect]
     Dosage: 300 MG, 1 TABLET TID
     Dates: start: 20070901
  2. NASONEX [Concomitant]
     Indication: NASAL POLYPS
     Dates: start: 20110101
  3. TEGRETOL [Suspect]
     Indication: BIPOLAR I DISORDER
     Dosage: 400 MG, 2 TABLETS QD
     Dates: start: 20070901
  4. LORMETAZEPAM [Suspect]
     Dates: start: 20090101, end: 20111101
  5. ATORVASTATIN [Suspect]
     Indication: HYPERCHOLESTEROLAEMIA
  6. ESOMEPRAZOLE SODIUM [Suspect]

REACTIONS (8)
  - ASTHMA [None]
  - RHINORRHOEA [None]
  - OBSTRUCTIVE AIRWAYS DISORDER [None]
  - COUGH [None]
  - ANOSMIA [None]
  - NASAL POLYPS [None]
  - WHEEZING [None]
  - FORCED EXPIRATORY VOLUME DECREASED [None]
